FAERS Safety Report 9376554 (Version 1)
Quarter: 2013Q3

REPORT INFORMATION
  Report Type: Spontaneous
  Country: US (occurrence: US)
  Receive Date: 20130701
  Receipt Date: 20130701
  Transmission Date: 20140515
  Serious: No
  Sender: FDA-Public Use
  Company Number: US-PFIZER INC-2013194450

PATIENT
  Age: 43 Year
  Sex: Female
  Weight: 77.55 kg

DRUGS (1)
  1. NICOTROL NASAL SPRAY [Suspect]
     Indication: SMOKING CESSATION THERAPY
     Dosage: UNK
     Route: 045
     Dates: start: 2012, end: 201306

REACTIONS (2)
  - Emotional disorder [Unknown]
  - Feeling abnormal [Unknown]
